FAERS Safety Report 6681207-X (Version None)
Quarter: 2010Q2

REPORT INFORMATION
  Report Type: 
  Country: None (occurrence: None)
  Receive Date: 20100414
  Receipt Date: 20090716
  Transmission Date: 20101027
  Serious: No
  Sender: FDA-Public Use
  Company Number: US-KINGPHARMUSA00001-K200900847

PATIENT
  Sex: Female
  Weight: 58.957 kg

DRUGS (2)
  1. SKELAXIN [Suspect]
     Indication: SCIATICA
     Dosage: 800 MG, Q 6-8 HOURS
     Route: 048
     Dates: start: 20090714, end: 20090715
  2. HYDROCODONE BITARTRATE [Suspect]
     Indication: SCIATICA
     Dosage: 5/500 MG
     Route: 048
     Dates: start: 20090714

REACTIONS (2)
  - BURNING SENSATION [None]
  - MOBILITY DECREASED [None]
